FAERS Safety Report 10060706 (Version 2)
Quarter: 2014Q2

REPORT INFORMATION
  Report Type: Report from Study
  Country: US (occurrence: US)
  Receive Date: 20140404
  Receipt Date: 20140414
  Transmission Date: 20141212
  Serious: Yes (Hospitalization)
  Sender: FDA-Public Use
  Company Number: US-OTSUKA-US-2014-10626

PATIENT
  Age: 45 Year
  Sex: Male

DRUGS (6)
  1. BLINDED OPC-14597 [Suspect]
     Indication: BIPOLAR I DISORDER
     Dosage: UNK
     Route: 048
     Dates: start: 20130717, end: 20131007
  2. BLINDED OPC-14597 [Suspect]
     Dosage: 300 MG MILLIGRAM(S), EVERY 4 WEEKS
     Route: 030
     Dates: start: 20131008
  3. METFORMIN HYDROCHLORIDE [Concomitant]
     Indication: TYPE 2 DIABETES MELLITUS
     Dosage: 1000 MG MILLIGRAM(S), BID
     Route: 048
     Dates: start: 2008
  4. GLIPIZIDE [Concomitant]
     Indication: TYPE 2 DIABETES MELLITUS
     Dosage: 5 MG MILLIGRAM(S), QD
     Route: 048
     Dates: start: 2008
  5. LISINOPRIL [Concomitant]
     Indication: HYPERTENSION
     Dosage: 20 MG MILLIGRAM(S), QD
     Route: 048
     Dates: start: 2008
  6. SIMVASTATIN [Concomitant]
     Indication: HYPERLIPIDAEMIA
     Dosage: 20 MG MILLIGRAM(S), QD
     Route: 048
     Dates: start: 2008

REACTIONS (1)
  - Atrial fibrillation [Not Recovered/Not Resolved]
